FAERS Safety Report 6929203-9 (Version None)
Quarter: 2010Q3

REPORT INFORMATION
  Report Type: 
  Country: None (occurrence: None)
  Receive Date: 20100812
  Receipt Date: 20100729
  Transmission Date: 20110219
  Serious: Yes (Hospitalization, Other)
  Sender: FDA-Public Use
  Company Number: ALD1-GB-2010-0041

PATIENT
  Sex: Female

DRUGS (8)
  1. METHYLDOPA [Suspect]
     Indication: PRODUCT USED FOR UNKNOWN INDICATION
     Dosage: 250 MG (3 IN 1 D) ; 500 MG (4 IN 1 D)
  2. HYDRALAZINE (HYDRALAZINE) (HYDRALAZINE) [Suspect]
     Indication: BLOOD PRESSURE ABNORMAL
  3. LABETALOL (LABETALOL) (LABETALOL) [Suspect]
     Indication: PRODUCT USED FOR UNKNOWN INDICATION
     Dosage: 100 MG (2 IN 1 D)
  4. NIFEDIPINE [Suspect]
     Indication: PRODUCT USED FOR UNKNOWN INDICATION
  5. ACETYLSALICYLIC ACID SRT [Concomitant]
  6. BETAMETHASONE (BETAMETHASONE) (BETAMETHASONE) [Concomitant]
  7. DALTEPARIN SODIUM (HEPARIN-FRACTION, SODIUM SALT) (HEPARIN-FRACTION, S [Concomitant]
  8. PHOSPHOLIPIDS (PHOSPHOLIPIDS) (PHOSPHOLIPIDS) [Concomitant]

REACTIONS (4)
  - BLOOD PRESSURE INADEQUATELY CONTROLLED [None]
  - BLOOD PRESSURE INCREASED [None]
  - CAESAREAN SECTION [None]
  - DRUG EXPOSURE DURING PREGNANCY [None]
